FAERS Safety Report 7569548-5 (Version None)
Quarter: 2011Q2

REPORT INFORMATION
  Report Type: 
  Country: None (occurrence: None)
  Receive Date: 20110624
  Receipt Date: 20110615
  Transmission Date: 20111010
  Serious: Yes (Hospitalization, Other)
  Sender: FDA-Public Use
  Company Number: US-BRISTOL-MYERS SQUIBB COMPANY-15834716

PATIENT
  Sex: Male

DRUGS (1)
  1. AVALIDE [Suspect]

REACTIONS (6)
  - ANXIETY [None]
  - ERYTHEMA [None]
  - BUNDLE BRANCH BLOCK RIGHT [None]
  - RETINAL DETACHMENT [None]
  - URTICARIA [None]
  - BLOOD PRESSURE FLUCTUATION [None]
